FAERS Safety Report 6322441-8 (Version None)
Quarter: 2009Q3

REPORT INFORMATION
  Report Type: 
  Country: None (occurrence: None)
  Receive Date: 20090824
  Receipt Date: 20090205
  Transmission Date: 20100115
  Serious: No
  Sender: FDA-Public Use
  Company Number: US-ABBOTT-09P-163-0502412-00

PATIENT
  Sex: Female
  Weight: 88.53 kg

DRUGS (3)
  1. NIASPAN [Suspect]
     Indication: BLOOD TRIGLYCERIDES INCREASED
     Dates: start: 20080101, end: 20080101
  2. PROCRIT [Concomitant]
     Indication: ANAEMIA
  3. NEULASTA [Concomitant]
     Indication: WHITE BLOOD CELL COUNT DECREASED
     Dosage: PRN

REACTIONS (2)
  - PRURITUS [None]
  - SCAR [None]
